FAERS Safety Report 4971109-9 (Version None)
Quarter: 2006Q1

REPORT INFORMATION
  Report Type: 
  Country: None (occurrence: None)
  Receive Date: 20060228
  Receipt Date: 20050218
  Transmission Date: 20060701
  Serious: Yes (Disabling)
  Sender: FDA-Public Use
  Company Number: 002#2#2005-00054

PATIENT
  Sex: Female

DRUGS (2)
  1. REGLAN [Suspect]
     Indication: GASTROOESOPHAGEAL REFLUX DISEASE
     Dosage: ORAL
     Route: 048
     Dates: start: 20000801, end: 20040401
  2. METOCLOPRAMIDE [Suspect]
     Indication: GASTROOESOPHAGEAL REFLUX DISEASE
     Dosage: ORAL
     Route: 048
     Dates: start: 20000801, end: 20040401

REACTIONS (1)
  - TARDIVE DYSKINESIA [None]
